FAERS Safety Report 9305764 (Version 1)
Quarter: 2013Q2

REPORT INFORMATION
  Report Type: Spontaneous
  Country: JP (occurrence: None)
  Receive Date: 20130514
  Receipt Date: 20130514
  Transmission Date: 20140414
  Serious: Yes (Other)
  Sender: FDA-Public Use
  Company Number: 2013035857

PATIENT
  Age: 74 Year
  Sex: Male

DRUGS (2)
  1. FIBROGAMMIN P [Suspect]
     Indication: HAEMOSTASIS
     Dosage: 960 IU TOTAL, 960 IU TOTAL, 1200 IU TOTAL,
  2. PREDNISOLONE [Concomitant]

REACTIONS (1)
  - Factor XIII Inhibition [None]
